FAERS Safety Report 12443743 (Version 2)
Quarter: 2018Q1

REPORT INFORMATION
  Report Type: Report from Study
  Country: NL (occurrence: NL)
  Receive Date: 20160607
  Receipt Date: 20180116
  Transmission Date: 20180508
  Serious: Yes (Hospitalization, Other)
  Sender: FDA-Public Use
  Company Number: NL-TEVA-665626ISR

PATIENT
  Age: 56 Year
  Sex: Male

DRUGS (5)
  1. LONQUEX [Suspect]
     Active Substance: LIPEGFILGRASTIM
     Indication: PROPHYLAXIS
     Dosage: LAST DOSAGE PRIOR THE AE 23-JAN-2016
     Route: 058
     Dates: start: 20160123
  2. DOXORUBICIN [Suspect]
     Active Substance: DOXORUBICIN
     Indication: HODGKIN^S DISEASE
     Dosage: 46 MILLIGRAM DAILY; LAST DOSAGE PRIOR THE AE 22-JAN-2016
     Route: 042
     Dates: start: 20160122
  3. DACARBAZINE. [Suspect]
     Active Substance: DACARBAZINE
     Indication: HODGKIN^S DISEASE
     Dosage: 700 MILLIGRAM DAILY; LAST DOSAGE PRIOR THE AE 22-JAN-2016
     Route: 042
     Dates: start: 20160122
  4. VINBLASTIN [Suspect]
     Active Substance: VINBLASTINE
     Indication: HODGKIN^S DISEASE
     Dosage: 10 MILLIGRAM DAILY; LAST DOSAGE PRIOR THE AE 22-JAN-2016
     Route: 042
     Dates: start: 20160122
  5. BLEOMYCIN [Suspect]
     Active Substance: BLEOMYCIN SULFATE
     Indication: HODGKIN^S DISEASE
     Dosage: 18 DOSAGE FORMS DAILY; LAST DOSAGE PRIOR THE AE 22-JAN-2016
     Route: 042
     Dates: start: 20160122

REACTIONS (1)
  - Pneumonia [Recovered/Resolved]

NARRATIVE: CASE EVENT DATE: 20160128
